FAERS Safety Report 9745496 (Version 1)
Quarter: 2013Q4

REPORT INFORMATION
  Report Type: Spontaneous
  Country: US (occurrence: US)
  Receive Date: 20131211
  Receipt Date: 20131211
  Transmission Date: 20140711
  Serious: No
  Sender: FDA-Public Use
  Company Number: US-BIOGENIDEC-2013BI088502

PATIENT
  Sex: Male

DRUGS (12)
  1. TECFIDERA [Suspect]
     Indication: PRODUCT USED FOR UNKNOWN INDICATION
     Route: 048
  2. TECFIDERA [Suspect]
     Indication: PRODUCT USED FOR UNKNOWN INDICATION
     Route: 048
  3. PROTONIX [Concomitant]
  4. LIPITOR [Concomitant]
  5. REGLAN [Concomitant]
  6. AMITRIPTYLINE [Concomitant]
  7. NAMEDA [Concomitant]
  8. ZANAFLEX [Concomitant]
  9. FISH OIL [Concomitant]
  10. PROVIGIL [Concomitant]
  11. MULTIVITAMIN [Concomitant]
  12. RAPAFLO [Concomitant]

REACTIONS (2)
  - Abdominal discomfort [Unknown]
  - Nausea [Unknown]
